FAERS Safety Report 7173304-X (Version None)
Quarter: 2010Q4

REPORT INFORMATION
  Report Type: 
  Country: None (occurrence: None)
  Receive Date: 20101219
  Receipt Date: 20100224
  Transmission Date: 20110411
  Serious: No
  Sender: FDA-Public Use
  Company Number: US-AMGEN-KDL395270

PATIENT

DRUGS (2)
  1. ENBREL [Suspect]
     Indication: RHEUMATOID ARTHRITIS
     Dosage: UNK UNK, UNK
  2. HYDROXYCHLOROQUINE [Concomitant]
     Dosage: UNK UNK, UNK

REACTIONS (2)
  - ASTHMA LATE ONSET [None]
  - PNEUMONIA [None]
